FAERS Safety Report 21518178 (Version 2)
Quarter: 2023Q2

REPORT INFORMATION
  Report Type: Spontaneous
  Country: CN (occurrence: None)
  Receive Date: 20221028
  Receipt Date: 20230513
  Transmission Date: 20230722
  Serious: Yes (Other)
  Sender: FDA-Public Use
  Company Number: CN-ROCHE-3205803

PATIENT
  Age: 69 Year
  Sex: Female

DRUGS (4)
  1. MABTHERA [Suspect]
     Active Substance: RITUXIMAB
     Indication: Nodal marginal zone B-cell lymphoma
     Dosage: TREATMENT ON 12/AUG/2021 AND 11/SEP/2021, 22/OCT/2022 AND 21/NOV/2022, 31/JAN/2023, 01/MAR/2023 AND
     Route: 041
  2. GAZYVA [Suspect]
     Active Substance: OBINUTUZUMAB
     Indication: Nodal marginal zone B-cell lymphoma
     Dosage: ON DAY 1, DAY 8 AND DAY 15?NEW THERAPIES: 22/OCT/2022 AND 21/NOV/2022, 31/JAN/2023, 01/MAR/2023 AND
     Route: 041
     Dates: start: 20220915
  3. BENDAMUSTINE [Concomitant]
     Active Substance: BENDAMUSTINE
     Indication: Nodal marginal zone B-cell lymphoma
     Dosage: 100MG PER DAY, TREATMENT ON 12/AUG/2021 AND 11/SEP/2021
  4. BENDAMUSTINE [Concomitant]
     Active Substance: BENDAMUSTINE
     Dosage: 100MG PER DAY
     Dates: start: 20220915

REACTIONS (2)
  - Haemolysis [Unknown]
  - Off label use [Unknown]
